FAERS Safety Report 19254926 (Version 1)
Quarter: 2021Q2

REPORT INFORMATION
  Report Type: Spontaneous
  Country: US (occurrence: US)
  Receive Date: 20210513
  Receipt Date: 20210513
  Transmission Date: 20210717
  Serious: Yes (Other)
  Sender: FDA-Public Use
  Company Number: US-AUROBINDO-AUR-APL-2021-019044

PATIENT
  Age: 57 Year
  Sex: Male

DRUGS (3)
  1. ASPIRIN. [Concomitant]
     Active Substance: ASPIRIN
     Indication: PRODUCT USED FOR UNKNOWN INDICATION
     Dosage: 81 MILLIGRAM
  2. METHOTREXATE. [Suspect]
     Active Substance: METHOTREXATE
     Indication: LARGE GRANULAR LYMPHOCYTOSIS
     Dosage: 10 MILLIGRAM/SQ. METER
     Route: 048
     Dates: start: 201210, end: 201305
  3. EPOETIN ALFA [Suspect]
     Active Substance: ERYTHROPOIETIN
     Indication: ANAEMIA
     Dosage: UNK
     Route: 065
     Dates: start: 201303

REACTIONS (1)
  - Treatment failure [Unknown]
